FAERS Safety Report 11634877 (Version 1)
Quarter: 2015Q4

REPORT INFORMATION
  Report Type: Spontaneous
  Country: US (occurrence: US)
  Receive Date: 20151015
  Receipt Date: 20151015
  Transmission Date: 20160304
  Serious: Yes (Hospitalization, Other)
  Sender: FDA-Public Use
  Company Number: US-SA-2015SA111500

PATIENT
  Age: 42 Year
  Sex: Female

DRUGS (1)
  1. CAMPATH [Suspect]
     Active Substance: ALEMTUZUMAB
     Route: 042

REACTIONS (3)
  - Vomiting [Unknown]
  - Dyspnoea [Unknown]
  - Coccidioidomycosis [Unknown]

NARRATIVE: CASE EVENT DATE: 2015
